FAERS Safety Report 8320850-9 (Version None)
Quarter: 2012Q2

REPORT INFORMATION
  Report Type: 
  Country: None (occurrence: None)
  Receive Date: 20120430
  Receipt Date: 20120420
  Transmission Date: 20120825
  Serious: Yes (Other)
  Sender: FDA-Public Use
  Company Number: PHHY2012DE027469

PATIENT
  Sex: Female
  Weight: 64 kg

DRUGS (7)
  1. ZINKGLUCONAT [Concomitant]
     Dosage: 25 MG DAILY
     Route: 048
     Dates: start: 20110401
  2. PANTOPRAZOLE [Concomitant]
     Dosage: 20 MG, DAILY
     Route: 048
     Dates: start: 20090101
  3. DIANE [Concomitant]
     Indication: CONTRACEPTION
     Dosage: ONCE DAILY
     Route: 048
     Dates: start: 19800101
  4. ASPIRIN [Concomitant]
     Dosage: 100 MG, DAILY
     Route: 048
     Dates: start: 20090101
  5. TEGRETOL-XR [Suspect]
     Indication: TRIGEMINAL NEURALGIA
     Dosage: 1200 MG, DAILY
     Route: 048
     Dates: start: 20120301
  6. AMLODIPINE [Concomitant]
     Dosage: 5 MG, DAILY
     Route: 048
     Dates: start: 20090101
  7. ENALAPRIL MALEATE [Concomitant]
     Dosage: 2.5 MG, UNK
     Route: 048
     Dates: start: 20090101

REACTIONS (4)
  - MENSTRUAL DISORDER [None]
  - METRORRHAGIA [None]
  - HYPERSENSITIVITY [None]
  - ARTHRALGIA [None]
